FAERS Safety Report 20167474 (Version 2)
Quarter: 2022Q1

REPORT INFORMATION
  Report Type: Report from Study
  Country: NL (occurrence: NL)
  Receive Date: 20211209
  Receipt Date: 20220301
  Transmission Date: 20220423
  Serious: Yes (Hospitalization)
  Sender: FDA-Public Use
  Company Number: NL-BRISTOL-MYERS SQUIBB COMPANY-BMS-2021-132062

PATIENT
  Age: 66 Year
  Sex: Male
  Weight: 64.3 kg

DRUGS (2)
  1. NIVOLUMAB [Suspect]
     Active Substance: NIVOLUMAB
     Indication: Non-small cell lung cancer
     Dosage: 240 MILLIGRAM, Q2WK
     Route: 042
     Dates: start: 20211007, end: 20211021
  2. SITRAVATINIB [Suspect]
     Active Substance: SITRAVATINIB
     Indication: Non-small cell lung cancer
     Dosage: 100 MILLIGRAM, QD
     Route: 048
     Dates: start: 20211007, end: 20211103

REACTIONS (1)
  - Anaemia [Recovered/Resolved]

NARRATIVE: CASE EVENT DATE: 20211125
